FAERS Safety Report 4847820-7 (Version None)
Quarter: 2005Q4

REPORT INFORMATION
  Report Type: 
  Country: None (occurrence: None)
  Receive Date: 20051206
  Receipt Date: 20051123
  Transmission Date: 20060501
  Serious: Yes (Other)
  Sender: FDA-Public Use
  Company Number: 2005160796

PATIENT
  Sex: Male
  Weight: 113.3993 kg

DRUGS (10)
  1. VIAGRA [Suspect]
     Indication: ERECTILE DYSFUNCTION
     Dosage: 50 MG (25 MG, AS NECESSARY), ORAL
     Route: 048
  2. LEVITRA [Suspect]
     Indication: ERECTILE DYSFUNCTION
  3. CIALIS [Suspect]
     Indication: ERECTILE DYSFUNCTION
  4. ZOCOR [Concomitant]
  5. LISINOPRIL [Concomitant]
  6. ACTOS [Concomitant]
  7. INSULIN [Concomitant]
  8. MULTIVITAMIN [Concomitant]
  9. CHONDROITIN/GLUCOSAMINE (CHONDROITIN, GLUCOSAMINE) [Concomitant]
  10. ALL OTHER THERAPEUTIC PRODUCTS (ALL OTHER THERAPEUTIC PRODUCTS) [Concomitant]

REACTIONS (2)
  - CATARACT [None]
  - DRUG INEFFECTIVE [None]
